FAERS Safety Report 21639760 (Version 1)
Quarter: 2022Q4

REPORT INFORMATION
  Report Type: Report from Study
  Country: US (occurrence: US)
  Receive Date: 20221124
  Receipt Date: 20221124
  Transmission Date: 20230112
  Serious: No
  Sender: FDA-Public Use
  Company Number: US-ABBVIE-4162060

PATIENT
  Age: 65 Year
  Sex: Male

DRUGS (3)
  1. HUMIRA [Suspect]
     Active Substance: ADALIMUMAB
     Indication: Rheumatoid arthritis
     Route: 058
  2. Moderna COVID-19 vaccine (Elasomeran) [Concomitant]
     Indication: COVID-19 immunisation
     Dosage: 1ST DOSE, 1 IN ONCE
     Dates: start: 202103, end: 202103
  3. Moderna COVID-19 vaccine (Elasomeran) [Concomitant]
     Indication: COVID-19 immunisation
     Dosage: 2ND DOSE, 1 IN ONCE
     Dates: start: 202104, end: 202104

REACTIONS (3)
  - COVID-19 [Recovered/Resolved]
  - Asthma [Not Recovered/Not Resolved]
  - Drug ineffective [Recovered/Resolved]

NARRATIVE: CASE EVENT DATE: 20180901
